FAERS Safety Report 4702737-3 (Version None)
Quarter: 2005Q2

REPORT INFORMATION
  Report Type: 
  Country: None (occurrence: None)
  Receive Date: 20050624
  Receipt Date: 20050420
  Transmission Date: 20051028
  Serious: No
  Sender: FDA-Public Use
  Company Number: 2005BI008726

PATIENT
  Age: 61 Year
  Sex: Male

DRUGS (2)
  1. NATALIZUMAB [Suspect]
     Indication: MULTIPLE SCLEROSIS
     Dosage: 30 UG;QW;IM
     Route: 030
     Dates: start: 20041231, end: 20050201
  2. AVONEX [Suspect]
     Indication: MULTIPLE SCLEROSIS
     Dosage: 30 UG;QW;IM
     Route: 030
     Dates: start: 20050419

REACTIONS (3)
  - ABDOMINAL PAIN UPPER [None]
  - MUSCLE SPASMS [None]
  - MYALGIA [None]
